FAERS Safety Report 13384898 (Version 5)
Quarter: 2017Q4

REPORT INFORMATION
  Report Type: Report from Study
  Country: DE (occurrence: DE)
  Receive Date: 20170329
  Receipt Date: 20171017
  Transmission Date: 20180320
  Serious: Yes (Other)
  Sender: FDA-Public Use
  Company Number: DE-TAKEDA-2017TUS005965

PATIENT
  Sex: Male

DRUGS (7)
  1. SALOFALK                           /00000301/ [Concomitant]
     Active Substance: MESALAMINE
     Dosage: UNK
  2. MODULEN IBD [Concomitant]
     Dosage: UNK
  3. VEDOLIZUMAB [Suspect]
     Active Substance: VEDOLIZUMAB
     Indication: PRODUCT USED FOR UNKNOWN INDICATION
     Dosage: UNK
     Route: 042
     Dates: start: 20161125
  4. CALCIMAGON                         /00751501/ [Concomitant]
     Active Substance: CALCIUM CARBONATE
     Dosage: UNK
  5. URSOFALK [Concomitant]
     Active Substance: URSODIOL
     Dosage: 1000 MG, QD
     Dates: start: 20161216
  6. INFLIXIMAB [Concomitant]
     Active Substance: INFLIXIMAB
     Dosage: UNK
  7. IMODIUM [Concomitant]
     Active Substance: LOPERAMIDE HYDROCHLORIDE
     Dosage: UNK

REACTIONS (2)
  - Autoimmune hepatitis [Not Recovered/Not Resolved]
  - Cholangitis sclerosing [Not Recovered/Not Resolved]

NARRATIVE: CASE EVENT DATE: 20161212
